FAERS Safety Report 4354979-7 (Version None)
Quarter: 2004Q2

REPORT INFORMATION
  Report Type: 
  Country: None (occurrence: None)
  Receive Date: 20040504
  Receipt Date: 20040426
  Transmission Date: 20050107
  Serious: Yes (Hospitalization)
  Sender: FDA-Public Use
  Company Number: 2004210497US

PATIENT
  Sex: Female

DRUGS (1)
  1. DEPO-MEDROL [Suspect]
     Dates: start: 20040407

REACTIONS (5)
  - COLLAPSE OF LUNG [None]
  - IATROGENIC INJURY [None]
  - MEDICATION ERROR [None]
  - MUSCLE SPASMS [None]
  - RESTLESSNESS [None]
